FAERS Safety Report 10176014 (Version 4)
Quarter: 2021Q1

REPORT INFORMATION
  Report Type: Report from Study
  Country: CA (occurrence: CA)
  Receive Date: 20140516
  Receipt Date: 20210315
  Transmission Date: 20210419
  Serious: Yes (Hospitalization)
  Sender: FDA-Public Use
  Company Number: CA-JNJFOC-20140419450

PATIENT
  Age: 13 Year
  Sex: Female
  Weight: 63.11 kg

DRUGS (1)
  1. REMICADE [Suspect]
     Active Substance: INFLIXIMAB
     Indication: COLITIS ULCERATIVE
     Dosage: WEEK ONE, WEEK 4 THEN ONCE EVERY 4 WEEKS AND THEN 8 WEEKS, 5 MG/KG
     Route: 042
     Dates: start: 20140426, end: 2014

REACTIONS (6)
  - Off label use [Unknown]
  - Diarrhoea [Unknown]
  - Frequent bowel movements [Unknown]
  - Drug ineffective [Unknown]
  - Haemorrhage [Unknown]
  - Abdominal discomfort [Unknown]

NARRATIVE: CASE EVENT DATE: 201404
